FAERS Safety Report 5044617-2 (Version None)
Quarter: 2006Q2

REPORT INFORMATION
  Report Type: 
  Country: None (occurrence: None)
  Receive Date: 20060629
  Receipt Date: 20060616
  Transmission Date: 20061013
  Serious: Yes (Other)
  Sender: FDA-Public Use
  Company Number: 167-C5013-06060521

PATIENT

DRUGS (1)
  1. CC-5013 (LENALIDOMIDE) [Suspect]

REACTIONS (1)
  - HEPATOTOXICITY [None]
